FAERS Safety Report 24559113 (Version 1)
Quarter: 2024Q4

REPORT INFORMATION
  Report Type: Spontaneous
  Country: HU (occurrence: HU)
  Receive Date: 20241029
  Receipt Date: 20241029
  Transmission Date: 20250115
  Serious: Yes (Hospitalization)
  Sender: CHEPLAPHARM
  Company Number: None

PATIENT
  Age: 67 Year
  Sex: Male

DRUGS (2)
  1. CAPECITABINE [Suspect]
     Active Substance: CAPECITABINE
     Indication: Adenocarcinoma of colon
     Dosage: DAILY DOSE: 3500 MILLIGRAM
     Route: 048
     Dates: start: 20130130, end: 20130213
  2. OXALIPLATIN [Suspect]
     Active Substance: OXALIPLATIN
     Indication: Adenocarcinoma of colon
     Dosage: DAILY DOSE: 3500 MILLIGRAM
     Route: 048
     Dates: start: 20130130, end: 20130213

REACTIONS (6)
  - Gastroenteritis [Recovered/Resolved]
  - Ileus [Recovered/Resolved]
  - Renal impairment [Recovered/Resolved]
  - Hyponatraemia [Recovered/Resolved]
  - Hypokalaemia [Recovered/Resolved]
  - C-reactive protein increased [Recovered/Resolved]

NARRATIVE: CASE EVENT DATE: 20130101
